FAERS Safety Report 22031073 (Version 1)
Quarter: 2023Q1

REPORT INFORMATION
  Report Type: Report from Study
  Country: US (occurrence: US)
  Receive Date: 20230223
  Receipt Date: 20230223
  Transmission Date: 20230418
  Serious: Yes (Other)
  Sender: FDA-Public Use
  Company Number: US-ABBVIE-4315229

PATIENT
  Sex: Female

DRUGS (5)
  1. RINVOQ [Suspect]
     Active Substance: UPADACITINIB
     Indication: Ankylosing spondylitis
     Route: 048
     Dates: start: 202209
  2. GABAPENTIN [Concomitant]
     Active Substance: GABAPENTIN
     Indication: Product used for unknown indication
  3. TIZANIDINE HCL 2 mg [Concomitant]
     Indication: Product used for unknown indication
  4. DULOXETINE HCL  DR 20 mg [Concomitant]
     Indication: Product used for unknown indication
  5. FAMOTIDINE 10 mg [Concomitant]
     Indication: Product used for unknown indication

REACTIONS (4)
  - Spinal pain [Recovering/Resolving]
  - Arthralgia [Recovering/Resolving]
  - Ankylosing spondylitis [Not Recovered/Not Resolved]
  - Subcutaneous abscess [Recovering/Resolving]
